FAERS Safety Report 5524797-2 (Version None)
Quarter: 2007Q4

REPORT INFORMATION
  Report Type: 
  Country: None (occurrence: None)
  Receive Date: 20071116
  Receipt Date: 20071108
  Transmission Date: 20080405
  Serious: Yes (Life-Threatening, Hospitalization)
  Sender: FDA-Public Use
  Company Number: TCI2007A03843

PATIENT
  Age: 60 Year
  Sex: Female

DRUGS (7)
  1. ACTOS [Suspect]
     Indication: DIABETES MELLITUS
     Dosage: 15 MG (15 MG,1 IN 1 D) PER ORAL
     Route: 048
     Dates: start: 20051229, end: 20070308
  2. AMARYL [Concomitant]
  3. MIYA-BM                     (CLOSTRIDIUM BUTYRICUM) [Concomitant]
  4. NIZATIDINE [Concomitant]
  5. AMLODIPINE BESYLATE [Concomitant]
  6. ALLOPURINOL [Concomitant]
  7. PLAVIX [Concomitant]

REACTIONS (5)
  - CARDIAC FAILURE [None]
  - FALL [None]
  - FLUID RETENTION [None]
  - LOWER LIMB FRACTURE [None]
  - OSTEOPOROSIS [None]
